FAERS Safety Report 11285185 (Version 2)
Quarter: 2015Q4

REPORT INFORMATION
  Report Type: Report from Study
  Country: GR (occurrence: GR)
  Receive Date: 20150720
  Receipt Date: 20151112
  Transmission Date: 20160304
  Serious: Yes (Disabling, Other)
  Sender: FDA-Public Use
  Company Number: GR-ABBVIE-14P-066-1286724-00

PATIENT
  Sex: Female

DRUGS (9)
  1. PANTOPRAZOLE SODIUM. [Concomitant]
     Active Substance: PANTOPRAZOLE SODIUM
     Indication: PROPHYLAXIS
     Route: 048
  2. PANTOPRAZOLE SODIUM. [Concomitant]
     Active Substance: PANTOPRAZOLE SODIUM
     Indication: GASTRIC DISORDER
  3. ENLIFT [Concomitant]
     Indication: DEPRESSION
     Route: 048
  4. RIVETAL [Concomitant]
     Indication: PRODUCT USED FOR UNKNOWN INDICATION
     Route: 048
  5. RABEPRAZOLE [Concomitant]
     Active Substance: RABEPRAZOLE
     Indication: PRODUCT USED FOR UNKNOWN INDICATION
     Route: 048
  6. CALCIORAL D3 [Concomitant]
     Indication: PRODUCT USED FOR UNKNOWN INDICATION
     Route: 048
  7. DUODOPA [Suspect]
     Active Substance: CARBIDOPA\LEVODOPA
     Indication: PARKINSON^S DISEASE
     Dosage: MORNING DOSE: 8.5 ML, CONTINUOUS DOSE: 1.7 ML/H, EXTRA DOSE: 1.5 ML
     Route: 050
     Dates: start: 2010
  8. DUODOPA [Suspect]
     Active Substance: CARBIDOPA\LEVODOPA
     Dosage: MORNING DOSE: 0.5 ML, CONTINUOUS RATE: 1.4 ML/H, EXTRA DOSE: 1.5 ML
     Route: 050
  9. DUODOPA [Suspect]
     Active Substance: CARBIDOPA\LEVODOPA
     Dosage: MORNING DOSE: 8.5 ML,CONTINUOUS RATE: 1.5 ML/H,EXTRA DOSE: 1.5 ML
     Route: 050

REACTIONS (9)
  - Gait disturbance [Not Recovered/Not Resolved]
  - Bedridden [Not Recovered/Not Resolved]
  - Loss of consciousness [Recovering/Resolving]
  - Post procedural complication [Unknown]
  - General physical health deterioration [Not Recovered/Not Resolved]
  - Fall [Not Recovered/Not Resolved]
  - Disability [Not Recovered/Not Resolved]
  - Feeding disorder [Not Recovered/Not Resolved]
  - Hip fracture [Not Recovered/Not Resolved]

NARRATIVE: CASE EVENT DATE: 2011
